FAERS Safety Report 11656593 (Version 1)
Quarter: 2015Q4

REPORT INFORMATION
  Report Type: Spontaneous
  Country: US (occurrence: US)
  Receive Date: 20151023
  Receipt Date: 20151023
  Transmission Date: 20160304
  Serious: No
  Sender: FDA-Public Use
  Company Number: US-PFIZER INC-2015340594

PATIENT
  Sex: Male

DRUGS (3)
  1. VIAGRA [Suspect]
     Active Substance: SILDENAFIL CITRATE
     Indication: ERECTILE DYSFUNCTION
     Dosage: 100 MG, 2X/DAY
     Dates: start: 20150903
  2. METHOCARBAMOL. [Suspect]
     Active Substance: METHOCARBAMOL
     Dosage: UNK
  3. ROBIN /00196202/ [Concomitant]
     Indication: MUSCLE CONTRACTURE
     Dosage: UNK

REACTIONS (1)
  - Erection increased [Unknown]

NARRATIVE: CASE EVENT DATE: 20151009
